FAERS Safety Report 10231257 (Version 1)
Quarter: 2014Q2

REPORT INFORMATION
  Report Type: Spontaneous
  Country: US (occurrence: US)
  Receive Date: 20140611
  Receipt Date: 20140611
  Transmission Date: 20141212
  Serious: Yes (Hospitalization)
  Sender: FDA-Public Use
  Company Number: US-GLAXOSMITHKLINE-A1075669A

PATIENT
  Age: 65 Year
  Sex: Female

DRUGS (11)
  1. ADVAIR [Suspect]
     Indication: CHRONIC OBSTRUCTIVE PULMONARY DISEASE
     Dosage: 1PUFF PER DAY
     Route: 055
     Dates: start: 2012
  2. JANUVIA [Concomitant]
  3. METFORMIN [Concomitant]
  4. AMLODIPINE [Concomitant]
  5. CARVEDILOL [Concomitant]
  6. ASPIRIN LOW DOSE [Concomitant]
  7. DOXAZOSIN [Concomitant]
  8. LOSARTAN [Concomitant]
  9. CLONIDINE [Concomitant]
  10. GLYBURIDE [Concomitant]
  11. OXYGEN [Concomitant]

REACTIONS (10)
  - Thyroidectomy [Unknown]
  - Thyroid operation [Unknown]
  - Vomiting [Unknown]
  - Nodule [Unknown]
  - Dysphonia [Unknown]
  - Dysphagia [Recovering/Resolving]
  - Goitre [Unknown]
  - Dyspnoea [Unknown]
  - Vocal cord disorder [Unknown]
  - Drug administration error [Unknown]
